FAERS Safety Report 8328995-4 (Version None)
Quarter: 2012Q2

REPORT INFORMATION
  Report Type: 
  Country: None (occurrence: None)
  Receive Date: 20120502
  Receipt Date: 20120423
  Transmission Date: 20120825
  Serious: Yes (Other)
  Sender: FDA-Public Use
  Company Number: ES-JNJFOC-20120501098

PATIENT
  Age: 64 Year
  Sex: Female
  Weight: 70 kg

DRUGS (1)
  1. XARELTO [Suspect]
     Indication: SURGERY
     Route: 048
     Dates: start: 20120111, end: 20120131

REACTIONS (3)
  - ANXIETY [None]
  - AKATHISIA [None]
  - NERVOUSNESS [None]
